FAERS Safety Report 16651874 (Version 1)
Quarter: 2019Q3

REPORT INFORMATION
  Report Type: Spontaneous
  Country: FR (occurrence: FR)
  Receive Date: 20190731
  Receipt Date: 20190731
  Transmission Date: 20191004
  Serious: Yes (Hospitalization)
  Sender: FDA-Public Use
  Company Number: FR-009507513-1907FRA012731

PATIENT
  Age: 49 Year
  Sex: Male

DRUGS (1)
  1. ERTAPENEM SODIUM [Suspect]
     Active Substance: ERTAPENEM SODIUM
     Indication: INFECTION
     Dosage: 1 GRAM
     Route: 042
     Dates: start: 20190527, end: 20190604

REACTIONS (1)
  - Bicytopenia [Not Recovered/Not Resolved]

NARRATIVE: CASE EVENT DATE: 20190604
